FAERS Safety Report 8581452-2 (Version None)
Quarter: 2012Q3

REPORT INFORMATION
  Report Type: 
  Country: None (occurrence: None)
  Receive Date: 20120809
  Receipt Date: 20120801
  Transmission Date: 20120928
  Serious: Yes (Death, Hospitalization)
  Sender: FDA-Public Use
  Company Number: TR-BRISTOL-MYERS SQUIBB COMPANY-16736217

PATIENT
  Age: 75 Year
  Sex: Male
  Weight: 63 kg

DRUGS (8)
  1. PEMETREXED DISODIUM [Suspect]
     Indication: NON-SMALL CELL LUNG CANCER
     Dosage: LAST DOSE ON 04MAY12,825MG
     Route: 042
     Dates: start: 20120312, end: 20120511
  2. FOLIC ACID [Concomitant]
     Dates: start: 20120307
  3. MYCOSTATIN [Concomitant]
     Dates: start: 20120511
  4. CISPLATIN [Suspect]
     Indication: NON-SMALL CELL LUNG CANCER
     Dosage: LAST DOSE ON 04MAY12,120MG
     Route: 042
     Dates: start: 20120312, end: 20120511
  5. DEXAMETHASONE [Concomitant]
     Dates: start: 20120503, end: 20120507
  6. KENACORT-A OPHTHALMIC OINTMENT [Concomitant]
     Dates: start: 20120511
  7. VITAMIN B-12 [Concomitant]
     Dates: start: 20120307
  8. TANTUM [Concomitant]
     Dosage: TANTUM VERDE
     Dates: start: 20120511

REACTIONS (2)
  - RENAL FAILURE [None]
  - FEBRILE NEUTROPENIA [None]
